FAERS Safety Report 6389452 (Version 22)
Quarter: 2013Q4

REPORT INFORMATION
  Report Type: Spontaneous
  Country: US (occurrence: US)
  Receive Date: 20070823
  Receipt Date: 20131101
  Transmission Date: 20140711
  Serious: Yes (Death, Hospitalization, Other)
  Sender: FDA-Public Use
  Company Number: PHEH2007US11288

PATIENT
  Age: 66 Year
  Sex: Female
  Weight: 52.2 kg

DRUGS (49)
  1. ZOMETA [Suspect]
     Dosage: 4 MG,
     Route: 042
     Dates: start: 200109, end: 20050701
  2. AREDIA [Suspect]
     Indication: METASTASES TO BONE
     Dosage: 90 MG,
     Dates: start: 20010920
  3. AREDIA [Suspect]
     Dosage: 90 MG, Q4W
     Dates: start: 20121018, end: 20130403
  4. ZOLOFT (SERTRALINE HYDROCHLORIDE) [Concomitant]
  5. NASONEX [Concomitant]
     Route: 045
  6. CHLORHEXIDINE [Concomitant]
  7. NEURONTIN [Concomitant]
     Indication: MUSCULOSKELETAL PAIN
     Dosage: 200 MG,
  8. MAGIC MOUTHWASH [Concomitant]
  9. AUGMENTIN [Concomitant]
     Dosage: 875 MG, BID
     Route: 048
  10. ONDANSETRON [Concomitant]
     Dosage: 24 MG, DAILY FOR 3 DAYS
     Route: 048
  11. ACYCLOVIR [Concomitant]
     Dosage: 800 MG, Q12H
     Route: 048
  12. FLUCONAZOLE [Concomitant]
     Dosage: 400 MG, QD
     Route: 048
  13. GABAPENTIN [Concomitant]
     Dosage: 200 MG, BID
     Route: 048
  14. HYDROCORTISONE [Concomitant]
     Dosage: 250 MG, ONCE/SINGLE
     Route: 042
  15. DIPHENHYDRAMINE [Concomitant]
     Dosage: 50 MG, ONCE/SINGLE
  16. MELPHALAN [Concomitant]
     Dosage: 295 MG, ONCE/SINGLE
  17. IBUPROFEN [Concomitant]
     Dosage: 200 MG,
     Route: 048
  18. UNASYN [Concomitant]
     Dosage: 1.5 G,
     Route: 042
  19. UNASYN [Concomitant]
     Dosage: 3 G, Q6H
     Route: 042
  20. COMPAZINE [Concomitant]
     Route: 048
  21. POTASSIUM [Concomitant]
     Dosage: 80 MEQ, QD
  22. NEUPOGEN [Concomitant]
     Dosage: 300 MG,
  23. ZOSYN [Concomitant]
  24. FILGRASTIM [Concomitant]
     Dosage: 0.3 MG,
     Route: 042
  25. CEFEPIME [Concomitant]
     Dosage: 1 G, Q8H
     Route: 042
  26. ZOFRAN [Concomitant]
     Dosage: 8 MG, TID
     Route: 042
  27. CIPRO ^MILES^ [Concomitant]
     Dosage: 500 MG, TID
  28. CYTOXAN [Concomitant]
  29. DOXIL [Concomitant]
     Dates: start: 200310
  30. PEN-VEE-K [Concomitant]
     Dosage: 500 MG, BID
     Route: 042
     Dates: start: 20070917
  31. CHANTIX [Concomitant]
  32. TORADOL [Concomitant]
  33. IRON DEXTRAN [Concomitant]
     Dosage: 800 MG,
     Route: 042
  34. ARANESP [Concomitant]
  35. VINCRISTINE [Concomitant]
  36. CELEBREX [Concomitant]
  37. AMOXICILLIN [Concomitant]
  38. PROCRIT                            /00909301/ [Concomitant]
     Indication: ANAEMIA
  39. PENICILLIN ^GRUNENTHAL^ [Concomitant]
  40. SKELAXIN [Concomitant]
  41. RELAFEN [Concomitant]
  42. OXYCONTIN [Concomitant]
  43. CLINDAMYCIN [Concomitant]
  44. DIFLUCORTOLONE VALERATE [Concomitant]
  45. THALIDOMIDE [Concomitant]
  46. COUMADIN ^BOOTS^ [Concomitant]
  47. AMBIEN [Concomitant]
  48. ASPIRIN [Concomitant]
  49. BETA BLOCKING AGENTS [Concomitant]

REACTIONS (126)
  - Vulvovaginal burning sensation [Unknown]
  - Urinary tract infection [Unknown]
  - Kyphosis [Unknown]
  - Pelvic mass [Unknown]
  - Pulmonary oedema [Unknown]
  - Ischaemic cardiomyopathy [Unknown]
  - Arthralgia [Unknown]
  - Gastroduodenitis [Unknown]
  - Haematochezia [Unknown]
  - Diaphragmatic hernia [Unknown]
  - Haemorrhoids [Unknown]
  - Insomnia [Unknown]
  - Colitis ulcerative [Unknown]
  - Nerve injury [Unknown]
  - Diarrhoea [Unknown]
  - Haematemesis [Unknown]
  - Angiodysplasia [Unknown]
  - Lung infiltration [Unknown]
  - Bone neoplasm [Unknown]
  - Aortic valve incompetence [Unknown]
  - Pulmonary valve incompetence [Unknown]
  - Hypercalcaemia [Unknown]
  - Palpitations [Unknown]
  - Peripheral vascular disorder [Unknown]
  - Death [Fatal]
  - Dehydration [Unknown]
  - Nausea [Unknown]
  - Vomiting [Unknown]
  - Cardiac failure congestive [Unknown]
  - Abscess neck [Unknown]
  - Osteonecrosis of jaw [Unknown]
  - Pain [Recovering/Resolving]
  - Deformity [Unknown]
  - Hypophagia [Unknown]
  - Emotional distress [Unknown]
  - Anxiety [Unknown]
  - Decreased interest [Unknown]
  - Injury [Unknown]
  - Life expectancy shortened [Unknown]
  - Discomfort [Unknown]
  - Gingival erosion [Unknown]
  - Oral disorder [Unknown]
  - Gingival disorder [Unknown]
  - Mucosal inflammation [Unknown]
  - Candida infection [Unknown]
  - Anaemia [Unknown]
  - Osteomyelitis [Unknown]
  - Abscess oral [Unknown]
  - Impaired healing [Unknown]
  - Abdominal pain [Unknown]
  - Fall [Unknown]
  - Endoscopy [Recovered/Resolved with Sequelae]
  - Colonoscopy [Unknown]
  - Local swelling [Recovering/Resolving]
  - Pneumonia [Unknown]
  - Gastritis [Unknown]
  - Gastrointestinal haemorrhage [Unknown]
  - Neutropenia [Unknown]
  - Rectal haemorrhage [Unknown]
  - Compression fracture [Unknown]
  - Renal failure acute [Unknown]
  - Hypokalaemia [Unknown]
  - Gastrointestinal arteriovenous malformation [Unknown]
  - Melaena [Unknown]
  - Atelectasis [Unknown]
  - Metastases to bone [Unknown]
  - Spinal osteoarthritis [Unknown]
  - Osteolysis [Unknown]
  - Depression [Unknown]
  - Unresponsive to stimuli [Unknown]
  - Neuropathy peripheral [Unknown]
  - Pyrexia [Unknown]
  - Dyspnoea [Unknown]
  - Musculoskeletal chest pain [Unknown]
  - Carpal tunnel syndrome [Unknown]
  - Hypoaesthesia [Unknown]
  - White blood cell count decreased [Unknown]
  - Red blood cell count decreased [Unknown]
  - Haematocrit decreased [Unknown]
  - Mean cell haemoglobin concentration [Unknown]
  - C-reactive protein increased [Unknown]
  - Red blood cell sedimentation rate increased [Unknown]
  - Reticulocyte count increased [Unknown]
  - Intervertebral disc disorder [Unknown]
  - Lumbar radiculopathy [Unknown]
  - Intervertebral disc protrusion [Unknown]
  - Vertebral foraminal stenosis [Unknown]
  - Lumbar spinal stenosis [Unknown]
  - Arthropathy [Unknown]
  - Spinal pain [Unknown]
  - Radiculopathy [Unknown]
  - Colon adenoma [Unknown]
  - Hiatus hernia [Unknown]
  - Lymphadenopathy [Unknown]
  - Central nervous system lesion [Unknown]
  - Cough [Unknown]
  - Emphysema [Unknown]
  - Back pain [Unknown]
  - Pleural effusion [Unknown]
  - Cardiomyopathy [Unknown]
  - Coronary artery disease [Unknown]
  - Hypotension [Unknown]
  - Neoplasm progression [Unknown]
  - Malignant neoplasm progression [Unknown]
  - Left ventricular dysfunction [Unknown]
  - Ejection fraction decreased [Unknown]
  - Mitral valve incompetence [Unknown]
  - Pulmonary hypertension [Unknown]
  - Ventricular hypokinesia [Unknown]
  - Coronary artery stenosis [Unknown]
  - Asthma [Recovered/Resolved]
  - Pulmonary mass [Unknown]
  - Bone lesion [Unknown]
  - Dilatation atrial [Unknown]
  - Orthopnoea [Unknown]
  - Sinus tachycardia [Unknown]
  - Left ventricular hypertrophy [Unknown]
  - Electrocardiogram T wave abnormal [Unknown]
  - Cardiomegaly [Unknown]
  - Chest discomfort [Unknown]
  - Herpes zoster [Unknown]
  - Upper respiratory tract infection [Unknown]
  - Loss of consciousness [Unknown]
  - Syncope [Unknown]
  - Ventricular extrasystoles [Unknown]
  - Vulvovaginal discomfort [Unknown]
